FAERS Safety Report 4516832-5 (Version None)
Quarter: 2004Q4

REPORT INFORMATION
  Report Type: 
  Country: None (occurrence: None)
  Receive Date: 20041202
  Receipt Date: 20030704
  Transmission Date: 20050328
  Serious: Yes (Death)
  Sender: FDA-Public Use
  Company Number: GB-GLAXOSMITHKLINE-B0304031A

PATIENT
  Age: 18 Year
  Sex: Male
  Weight: 60 kg

DRUGS (2)
  1. PAROXETINE HCL [Suspect]
     Indication: DEPRESSION
     Dosage: 20MG PER DAY
     Route: 048
     Dates: start: 20030609, end: 20030627
  2. ALBUTEROL [Concomitant]
     Dosage: 2PUFF AS REQUIRED
     Route: 055
     Dates: start: 20030609

REACTIONS (4)
  - COMPLETED SUICIDE [None]
  - DRUG INEFFECTIVE [None]
  - MEDICATION ERROR [None]
  - SELF INJURIOUS BEHAVIOUR [None]
